FAERS Safety Report 7591896-3 (Version None)
Quarter: 2011Q3

REPORT INFORMATION
  Report Type: 
  Country: None (occurrence: None)
  Receive Date: 20110701
  Receipt Date: 20110701
  Transmission Date: 20111222
  Serious: Yes (Other)
  Sender: FDA-Public Use
  Company Number: None

PATIENT
  Age: 71 Year
  Sex: Male
  Weight: 99.7913 kg

DRUGS (2)
  1. CLINDAMYCIN [Suspect]
  2. CLINDAMYCIN [Suspect]
     Indication: TOOTH INFECTION
     Dosage: 4X PER DAY
     Dates: start: 20110430, end: 20110505

REACTIONS (6)
  - COLITIS [None]
  - VOMITING [None]
  - INFLUENZA [None]
  - RETCHING [None]
  - CHROMATURIA [None]
  - PYREXIA [None]
